FAERS Safety Report 22152089 (Version 7)
Quarter: 2025Q2

REPORT INFORMATION
  Report Type: Spontaneous
  Country: US (occurrence: US)
  Receive Date: 20230329
  Receipt Date: 20250519
  Transmission Date: 20250717
  Serious: No
  Sender: BIOGEN
  Company Number: US-BIOGEN-2023BI01182278

PATIENT
  Age: 67 Year
  Sex: Female

DRUGS (4)
  1. VUMERITY [Suspect]
     Active Substance: DIROXIMEL FUMARATE
     Indication: Multiple sclerosis
     Route: 050
     Dates: start: 20221216, end: 20221224
  2. VUMERITY [Suspect]
     Active Substance: DIROXIMEL FUMARATE
     Dosage: STOP DATE ALSO REPORTED AS AUG-2024
     Route: 050
     Dates: start: 20221225, end: 20240629
  3. VUMERITY [Suspect]
     Active Substance: DIROXIMEL FUMARATE
     Route: 050
     Dates: start: 20250321
  4. VUMERITY [Suspect]
     Active Substance: DIROXIMEL FUMARATE
     Route: 050
     Dates: start: 2025

REACTIONS (10)
  - Anxiety [Not Recovered/Not Resolved]
  - Influenza like illness [Unknown]
  - Multiple sclerosis relapse [Unknown]
  - Renal disorder [Unknown]
  - Blood calcium increased [Unknown]
  - Muscle spasms [Unknown]
  - Abdominal discomfort [Unknown]
  - Flatulence [Recovered/Resolved]
  - Gastrointestinal disorder [Recovered/Resolved]
  - Hot flush [Unknown]

NARRATIVE: CASE EVENT DATE: 20230201
